APPROVED DRUG PRODUCT: NOREPINEPHRINE BITARTRATE IN 5% DEXTROSE
Active Ingredient: NOREPINEPHRINE BITARTRATE
Strength: EQ 4MG BASE/250ML (EQ 16MCG BASE/ML)
Dosage Form/Route: SOLUTION;INTRAVENOUS
Application: A219692 | Product #001 | TE Code: AP
Applicant: SAGENT PHARMACEUTICALS
Approved: Aug 11, 2025 | RLD: No | RS: No | Type: RX